FAERS Safety Report 25555975 (Version 1)
Quarter: 2025Q3

REPORT INFORMATION
  Report Type: Spontaneous
  Country: US (occurrence: US)
  Receive Date: 20250715
  Receipt Date: 20250715
  Transmission Date: 20251020
  Serious: Yes (Other)
  Sender: PURDUE
  Company Number: US-PURDUE-USA-2025-0318902

PATIENT
  Age: 68 Year
  Sex: Male

DRUGS (3)
  1. BUPRENORPHINE HYDROCHLORIDE AND NALOXONE HYDROCHLORIDE [Suspect]
     Active Substance: BUPRENORPHINE HYDROCHLORIDE\NALOXONE HYDROCHLORIDE
     Indication: Back pain
     Dosage: BUPRENORPHINE 4 MG-NALOXONE 1 MG, 4 TIMES DAILY FOR 10 YEARS
     Route: 065
  2. GABAPENTIN [Suspect]
     Active Substance: GABAPENTIN
     Indication: Product used for unknown indication
     Route: 065
  3. TRAZODONE [Suspect]
     Active Substance: TRAZODONE HYDROCHLORIDE
     Indication: Product used for unknown indication
     Route: 065

REACTIONS (6)
  - Hypoventilation [Unknown]
  - Hypoxia [Unknown]
  - Central sleep apnoea syndrome [Unknown]
  - Obstructive sleep apnoea syndrome [Unknown]
  - Respiration abnormal [Unknown]
  - Device intolerance [Unknown]
